FAERS Safety Report 11111971 (Version 1)
Quarter: 2015Q2

REPORT INFORMATION
  Report Type: Spontaneous
  Country: US (occurrence: None)
  Receive Date: 20150513
  Receipt Date: 20150513
  Transmission Date: 20150821
  Serious: Yes (Other)
  Sender: FDA-Public Use
  Company Number: None

PATIENT
  Age: 61 Year
  Sex: Female
  Weight: 78.93 kg

DRUGS (1)
  1. INVOKAMET [Suspect]
     Active Substance: CANAGLIFLOZIN\METFORMIN HYDROCHLORIDE
     Indication: DIABETES MELLITUS
     Dosage: 1 TWICE DAILY AFTER LUNCH + DINNER?
     Route: 048
     Dates: start: 20150504

REACTIONS (2)
  - Product commingling [None]
  - Drug dispensing error [None]

NARRATIVE: CASE EVENT DATE: 20150512
